FAERS Safety Report 5843561-8 (Version None)
Quarter: 2008Q3

REPORT INFORMATION
  Report Type: 
  Country: None (occurrence: None)
  Receive Date: 20080813
  Receipt Date: 20080808
  Transmission Date: 20090109
  Serious: Yes (Other)
  Sender: FDA-Public Use
  Company Number: GB-MERCK-0804GBR00091

PATIENT
  Age: 84 Year
  Sex: Male

DRUGS (7)
  1. PROSCAR [Suspect]
     Route: 065
  2. FINASTERIDE [Suspect]
     Indication: BENIGN PROSTATIC HYPERPLASIA
     Route: 048
     Dates: start: 20080215, end: 20080327
  3. ASPIRIN [Concomitant]
     Indication: CARDIOVASCULAR EVENT PROPHYLAXIS
     Route: 048
     Dates: start: 20000101
  4. ASPIRIN [Concomitant]
     Indication: HYPERTENSION
     Route: 048
     Dates: start: 20000101
  5. FELODIPINE [Concomitant]
     Route: 048
     Dates: start: 20000101
  6. FOSINOPRIL SODIUM [Concomitant]
     Route: 048
     Dates: start: 20000101
  7. KETOPROFEN [Concomitant]
     Route: 048

REACTIONS (1)
  - TREMOR [None]
